FAERS Safety Report 9892671 (Version 2)
Quarter: 2014Q1

REPORT INFORMATION
  Report Type: Report from Study
  Country: US (occurrence: US)
  Receive Date: 20140212
  Receipt Date: 20140212
  Transmission Date: 20141002
  Serious: Yes (Death)
  Sender: FDA-Public Use
  Company Number: US-ABBVIE-13P-163-1125604-00

PATIENT
  Sex: Female
  Weight: 60.43 kg

DRUGS (33)
  1. CREON [Suspect]
     Indication: PANCREATIC INSUFFICIENCY
     Dosage: 12,000 U-38,000 U, 60,000 U (DR/EC) 1-2 CAPS W/MEALS
     Route: 048
     Dates: start: 20130418
  2. ENOXAPARIN [Concomitant]
     Indication: PRODUCT USED FOR UNKNOWN INDICATION
     Dosage: 60 MG/0.6 ML SYRINGE
     Route: 058
  3. HYDROCODONE/APAP [Concomitant]
     Indication: PRODUCT USED FOR UNKNOWN INDICATION
  4. ASPIRIN [Concomitant]
     Indication: PRODUCT USED FOR UNKNOWN INDICATION
     Dosage: DR/EC
     Route: 048
  5. DOCUSATE [Concomitant]
     Indication: PRODUCT USED FOR UNKNOWN INDICATION
  6. GAS RELIEF [Concomitant]
     Indication: PRODUCT USED FOR UNKNOWN INDICATION
  7. LANTUS [Concomitant]
     Indication: PRODUCT USED FOR UNKNOWN INDICATION
  8. LISINOPRIL [Concomitant]
     Indication: PRODUCT USED FOR UNKNOWN INDICATION
  9. LORAZEPAM [Concomitant]
     Indication: NAUSEA
     Dosage: 1/2 TAB AT BEDTIME
     Route: 048
  10. LORAZEPAM [Concomitant]
     Indication: VOMITING
  11. LORAZEPAM [Concomitant]
     Indication: INSOMNIA
  12. LORAZEPAM [Concomitant]
     Indication: ANXIETY
  13. METFORMIN [Concomitant]
     Indication: PRODUCT USED FOR UNKNOWN INDICATION
  14. METOPROLOL [Concomitant]
     Indication: PRODUCT USED FOR UNKNOWN INDICATION
  15. NOVOLOG [Concomitant]
     Indication: PRODUCT USED FOR UNKNOWN INDICATION
     Dosage: 100 UNIT/ML SOLUTION
     Route: 058
  16. ONDANSETRON HCL [Concomitant]
     Indication: NAUSEA
     Dosage: AS NEEDED
     Route: 048
  17. ONDANSETRON HCL [Concomitant]
     Indication: VOMITING
  18. OXYBUTYNIN CHLORIDE [Concomitant]
     Indication: PRODUCT USED FOR UNKNOWN INDICATION
     Route: 048
  19. OXYCODONE [Concomitant]
     Indication: PRODUCT USED FOR UNKNOWN INDICATION
  20. PROCHLORPERAZINE MALEATE [Concomitant]
     Indication: NAUSEA
     Dosage: AS NEEDED
     Route: 048
  21. PROCHLORPERAZINE MALEATE [Concomitant]
     Indication: VOMITING
  22. SIMVASTATIN [Concomitant]
     Indication: PRODUCT USED FOR UNKNOWN INDICATION
  23. MIRTAZAPINE [Concomitant]
     Indication: PRODUCT USED FOR UNKNOWN INDICATION
     Dosage: AT BEDTIME
     Route: 048
  24. PRILOSEC [Concomitant]
     Indication: PRODUCT USED FOR UNKNOWN INDICATION
     Dosage: DR/EC AS NEEDED
     Route: 048
  25. ACETAMINOPHEN [Concomitant]
     Indication: PAIN
     Dosage: AS NEEDED
     Route: 048
  26. ACETAMINOPHEN [Concomitant]
     Indication: PYREXIA
  27. BISACODYL [Concomitant]
     Indication: CONSTIPATION
     Dosage: NOT TAKING AS PRESCRIBED
     Route: 054
  28. CALCIUM CARBONATE [Concomitant]
     Indication: PRODUCT USED FOR UNKNOWN INDICATION
  29. VITAMIN B-12 [Concomitant]
     Indication: PRODUCT USED FOR UNKNOWN INDICATION
  30. COLACE [Concomitant]
     Indication: CONSTIPATION
     Dosage: AS NEEDED
     Route: 048
  31. NPH INSULIN HUMAN RECOMB (HUMULIN N PEN) [Concomitant]
     Indication: PRODUCT USED FOR UNKNOWN INDICATION
     Dosage: 100 UNIT/ML (3ML)
     Route: 058
  32. SENNOSIDES (SENNA) [Concomitant]
     Indication: CONSTIPATION
     Dosage: AS NEEDED
     Route: 048
  33. SODIUM PHOSPHATES (FLEET ENEMA) [Concomitant]
     Indication: CONSTIPATION
     Dosage: 19 GRAM-7 GRAM/118 ML AS NEEDED
     Route: 054

REACTIONS (4)
  - Small intestine carcinoma metastatic [Fatal]
  - Bile duct obstruction [Fatal]
  - Cholangitis [Fatal]
  - Bacteraemia [Fatal]
